FAERS Safety Report 9173537 (Version 3)
Quarter: 2013Q3

REPORT INFORMATION
  Report Type: Report from Study
  Country: BR (occurrence: BR)
  Receive Date: 20130320
  Receipt Date: 20130812
  Transmission Date: 20140515
  Serious: Yes (Other)
  Sender: FDA-Public Use
  Company Number: BR-ELI_LILLY_AND_COMPANY-BR201211007072

PATIENT
  Sex: Female
  Weight: 35 kg

DRUGS (10)
  1. TERIPARATIDE [Suspect]
     Indication: OSTEOPOROSIS
     Dosage: 20 UG, QD
     Route: 058
  2. TERIPARATIDE [Suspect]
     Dosage: UNK, EACH MORNING
     Route: 058
  3. CALCIUM CARBONATE [Concomitant]
     Dosage: 500 MG, QD
     Route: 065
  4. VITAMIN D3 [Concomitant]
     Dosage: UNK, UNKNOWN
     Route: 065
  5. VITAMIN D [Concomitant]
     Dosage: 5 MG, UNKNOWN
     Route: 065
  6. BROMAZEPAM [Concomitant]
     Indication: RELAXATION THERAPY
     Dosage: 3 MG, QD
     Route: 065
  7. ENALAPRIL [Concomitant]
     Dosage: 10 MG, QD
     Route: 065
  8. ATENOLOL W/CHLORTALIDONE [Concomitant]
     Dosage: UNK, UNKNOWN
     Route: 065
  9. EXELON [Concomitant]
     Dosage: 4.6 MG, QD
     Route: 065
  10. OMEPRAZOL                          /00661201/ [Concomitant]
     Dosage: 20 MG, QD
     Route: 065

REACTIONS (9)
  - Dementia Alzheimer^s type [Not Recovered/Not Resolved]
  - Memory impairment [Not Recovered/Not Resolved]
  - Soliloquy [Unknown]
  - Injection site discolouration [Recovered/Resolved]
  - Muscular weakness [Not Recovered/Not Resolved]
  - Confusional state [Not Recovered/Not Resolved]
  - Pain in extremity [Recovered/Resolved]
  - Asthenia [Unknown]
  - Weight increased [Unknown]
